FAERS Safety Report 10172263 (Version 1)
Quarter: 2014Q2

REPORT INFORMATION
  Report Type: Spontaneous
  Country: US (occurrence: US)
  Receive Date: 20140515
  Receipt Date: 20140515
  Transmission Date: 20141212
  Serious: No
  Sender: FDA-Public Use
  Company Number: US-ASTRAZENECA-2013SE74363

PATIENT
  Age: 60 Year
  Sex: Male

DRUGS (2)
  1. ZOLADEX [Suspect]
     Indication: PROSTATE CANCER
     Route: 058
     Dates: start: 201304
  2. ZOLADEX [Suspect]
     Indication: PROSTATE CANCER
     Route: 058
     Dates: end: 201307

REACTIONS (12)
  - Mental disorder [Unknown]
  - Thinking abnormal [Unknown]
  - Abnormal behaviour [Unknown]
  - Eye swelling [Unknown]
  - Joint swelling [Unknown]
  - Chest discomfort [Unknown]
  - Wheezing [Unknown]
  - Hot flush [Unknown]
  - Aggression [Unknown]
  - Weight increased [Unknown]
  - Back pain [Unknown]
  - Mood swings [Unknown]
